FAERS Safety Report 6996711-4 (Version None)
Quarter: 2010Q3

REPORT INFORMATION
  Report Type: 
  Country: None (occurrence: None)
  Receive Date: 20100918
  Receipt Date: 20090630
  Transmission Date: 20110219
  Serious: No
  Sender: FDA-Public Use
  Company Number: US-WYE-H09975009

PATIENT
  Sex: Male

DRUGS (5)
  1. EFFEXOR XR [Suspect]
     Indication: DEPRESSION
     Route: 048
     Dates: start: 20090415
  2. ROBITUSSIN COUGH LONG ACTING [Concomitant]
  3. GUANFACINE HYDROCHLORIDE [Concomitant]
  4. STRATTERA [Concomitant]
  5. ABILIFY [Concomitant]

REACTIONS (1)
  - DRUG SCREEN POSITIVE [None]
